FAERS Safety Report 4690876-5 (Version None)
Quarter: 2005Q2

REPORT INFORMATION
  Report Type: 
  Country: None (occurrence: None)
  Receive Date: 20050613
  Receipt Date: 20050601
  Transmission Date: 20051028
  Serious: Yes (Other)
  Sender: FDA-Public Use
  Company Number: 200511347BCC

PATIENT
  Age: 83 Year
  Sex: Female
  Weight: 54.4316 kg

DRUGS (16)
  1. ALEVE [Suspect]
     Indication: OSTEOPOROSIS
     Dosage: 440 MG, QD, ORAL
     Route: 048
     Dates: start: 19990101, end: 20041226
  2. ALEVE [Suspect]
     Indication: PAIN
     Dosage: 440 MG, QD, ORAL
     Route: 048
     Dates: start: 19990101, end: 20041226
  3. FORTEO [Concomitant]
  4. NEURONTIN [Concomitant]
  5. ARICEPT [Concomitant]
  6. TOPROL-XL [Concomitant]
  7. DITROPAN XL [Concomitant]
  8. LEVOXYL [Concomitant]
  9. PLAVIX [Concomitant]
  10. STORE BRAND ASPIRIN [Concomitant]
  11. TEMAZEPAM [Concomitant]
  12. HALOPERIDOL [Concomitant]
  13. OS-CAL D [Concomitant]
  14. THERAGRAN-M [Concomitant]
  15. ASCORBIC ACID [Concomitant]
  16. VITAMIN E [Concomitant]

REACTIONS (7)
  - CIRCADIAN RHYTHM SLEEP DISORDER [None]
  - LOSS OF CONSCIOUSNESS [None]
  - OVERDOSE [None]
  - PAIN [None]
  - SEDATION [None]
  - SOMNOLENCE [None]
  - THYROID FUNCTION TEST ABNORMAL [None]
